FAERS Safety Report 11797373 (Version 1)
Quarter: 2015Q4

REPORT INFORMATION
  Report Type: Spontaneous
  Country: None (occurrence: None)
  Receive Date: 20151202
  Receipt Date: 20151202
  Transmission Date: 20160305
  Serious: Yes (Hospitalization)
  Sender: FDA-Public Use
  Company Number: None

PATIENT
  Age: 69 Year
  Sex: Female

DRUGS (1)
  1. AMITIZA [Suspect]
     Active Substance: LUBIPROSTONE
     Indication: CONSTIPATION
     Route: 048
     Dates: start: 20151128, end: 20151129

REACTIONS (6)
  - Headache [None]
  - Epistaxis [None]
  - Abdominal pain [None]
  - Abdominal distension [None]
  - Constipation [None]
  - Hypertension [None]

NARRATIVE: CASE EVENT DATE: 20151130
